FAERS Safety Report 5321542-0 (Version None)
Quarter: 2007Q1

REPORT INFORMATION
  Report Type: 
  Country: None (occurrence: None)
  Receive Date: 20070220
  Receipt Date: 20061030
  Transmission Date: 20070707
  Serious: No
  Sender: FDA-Public Use
  Company Number: TPA2006A01944

PATIENT
  Age: 69 Year
  Sex: Female
  Weight: 63.5036 kg

DRUGS (4)
  1. ROZEREM [Suspect]
     Indication: INSOMNIA
     Dosage: 8 MG, HS AS REQUIRED, PER ORAL
     Route: 048
     Dates: start: 20061001
  2. LOVASTATIN [Concomitant]
  3. ESTRADIOL [Concomitant]
  4. MULTIVITAMIN [Concomitant]

REACTIONS (1)
  - MIDDLE INSOMNIA [None]
